FAERS Safety Report 7107760-X (Version None)
Quarter: 2010Q4

REPORT INFORMATION
  Report Type: 
  Country: None (occurrence: None)
  Receive Date: 20101117
  Receipt Date: 20101102
  Transmission Date: 20110411
  Serious: Yes (Hospitalization)
  Sender: FDA-Public Use
  Company Number: PHHY2010US74206

PATIENT
  Sex: Female

DRUGS (2)
  1. ZELNORM [Suspect]
  2. DONNATAL [Suspect]

REACTIONS (1)
  - COLITIS [None]
